FAERS Safety Report 7571416-X (Version None)
Quarter: 2011Q2

REPORT INFORMATION
  Report Type: 
  Country: None (occurrence: None)
  Receive Date: 20110624
  Receipt Date: 20110615
  Transmission Date: 20111010
  Serious: Yes (Death)
  Sender: FDA-Public Use
  Company Number: GXBR2011US02837

PATIENT
  Sex: Male
  Weight: 45.351 kg

DRUGS (3)
  1. CLONIDINE [Suspect]
     Indication: ABNORMAL BEHAVIOUR
     Dosage: 0.1 MG, BID
     Route: 048
     Dates: start: 20091112
  2. LEVETIRACETAM [Suspect]
     Indication: EPILEPSY
     Dosage: 750 MG, QD2SDO
     Route: 048
     Dates: start: 20080101
  3. DEPAKOTE [Suspect]
     Indication: EPILEPSY
     Dosage: 375MG QAM, 500MG QHS
     Route: 048
     Dates: start: 20000101

REACTIONS (6)
  - DROWNING [None]
  - SEDATION [None]
  - DRUG INTERACTION [None]
  - FOAMING AT MOUTH [None]
  - EPILEPSY [None]
  - ABNORMAL BEHAVIOUR [None]
